FAERS Safety Report 8454818-9 (Version None)
Quarter: 2012Q2

REPORT INFORMATION
  Report Type: 
  Country: None (occurrence: None)
  Receive Date: 20120621
  Receipt Date: 20120611
  Transmission Date: 20120825
  Serious: Yes (Hospitalization)
  Sender: FDA-Public Use
  Company Number: US-BAYER-2012-006522

PATIENT
  Age: 48 Year
  Sex: Female
  Weight: 90.703 kg

DRUGS (6)
  1. YASMIN [Suspect]
     Indication: CONTRACEPTION
     Dosage: UNK
     Dates: start: 20070301, end: 20100901
  2. ALLERGY MEDICATION [Concomitant]
  3. LORATADINE [Concomitant]
     Dosage: 10 UNK, UNK
  4. DROSPIRENONE AND ETHINYL ESTRADIOL [Suspect]
     Indication: CONTRACEPTION
     Dosage: UNK
     Dates: start: 20070301, end: 20100901
  5. NSAID'S [Concomitant]
  6. FLUTICASONE FUROATE [Concomitant]
     Dosage: 50 MCG, SPRAY

REACTIONS (3)
  - INJURY [None]
  - PULMONARY EMBOLISM [None]
  - DEEP VEIN THROMBOSIS [None]
